FAERS Safety Report 8108080-7 (Version None)
Quarter: 2011Q4

REPORT INFORMATION
  Report Type: 
  Country: None (occurrence: None)
  Receive Date: 20111227
  Receipt Date: 20111006
  Transmission Date: 20120403
  Serious: Yes (Hospitalization)
  Sender: FDA-Public Use
  Company Number: PHHY2011US57528

PATIENT
  Age: 52 Year
  Sex: Female

DRUGS (7)
  1. AMANTADINE HCL [Concomitant]
  2. PREDNISONE TAB [Concomitant]
  3. BACLOFEN [Concomitant]
  4. ZOLOFT [Concomitant]
  5. GILENYA [Suspect]
     Indication: MULTIPLE SCLEROSIS RELAPSE
     Dosage: 0.5 MG, QD, ORAL
     Route: 048
     Dates: start: 20110617
  6. OXYBUTYNIN [Concomitant]
  7. ZOCOR [Concomitant]

REACTIONS (8)
  - ASTHENIA [None]
  - MULTIPLE SCLEROSIS RELAPSE [None]
  - FALL [None]
  - PLATELET COUNT DECREASED [None]
  - WHITE BLOOD CELL COUNT DECREASED [None]
  - BRONCHITIS [None]
  - PNEUMONIA [None]
  - ARTHRALGIA [None]
